FAERS Safety Report 4680077-9 (Version None)
Quarter: 2005Q2

REPORT INFORMATION
  Report Type: 
  Country: None (occurrence: None)
  Receive Date: 20050531
  Receipt Date: 20050519
  Transmission Date: 20051028
  Serious: Yes (Hospitalization)
  Sender: FDA-Public Use
  Company Number: 2005046724

PATIENT
  Age: 62 Year
  Sex: Female
  Weight: 60 kg

DRUGS (4)
  1. ATORVASTATIN CALCIUM [Suspect]
     Indication: HYPERLIPIDAEMIA
     Dosage: 5 MG (10 MG, 1/2 TABLET DAILY), ORAL
     Route: 048
     Dates: start: 20040101, end: 20050301
  2. ARUFIL (POLYVIDONE) [Concomitant]
  3. OTHER ANTI-ASTHMATICS, INHALANTS (OTHER ANTI-ASTHMATICS, INHALANTS) [Concomitant]
  4. BUDESONIDE [Concomitant]

REACTIONS (3)
  - LICHENOID KERATOSIS [None]
  - PRURITUS [None]
  - VIRAL RASH [None]
